FAERS Safety Report 10447233 (Version 2)
Quarter: 2014Q4

REPORT INFORMATION
  Report Type: Spontaneous
  Country: DZ (occurrence: DZ)
  Receive Date: 20140911
  Receipt Date: 20141008
  Transmission Date: 20150528
  Serious: Yes (Disabling)
  Sender: FDA-Public Use
  Company Number: DZ-SA-2014SA123816

PATIENT
  Age: 52 Year
  Sex: Female

DRUGS (4)
  1. HERCEPTIN [Suspect]
     Active Substance: TRASTUZUMAB
     Indication: BREAST CANCER
     Dosage: DOSE:752 MG FIRST THEN 340 MG
     Route: 042
     Dates: start: 20140312, end: 201407
  2. HERCEPTIN [Suspect]
     Active Substance: TRASTUZUMAB
     Indication: BREAST CANCER
     Dosage: DOSE:752 MG FIRST THEN 340 MG
     Route: 042
  3. FEMARA [Concomitant]
     Active Substance: LETROZOLE
     Dates: start: 201406
  4. TAXOTERE [Suspect]
     Active Substance: DOCETAXEL
     Indication: BREAST CANCER
     Route: 042
     Dates: start: 20140312, end: 20140529

REACTIONS (6)
  - Gait disturbance [Recovered/Resolved with Sequelae]
  - Hyporeflexia [Recovered/Resolved]
  - Muscle fatigue [Unknown]
  - Myalgia [Recovered/Resolved]
  - Paraplegia [Unknown]
  - Paraesthesia [Unknown]

NARRATIVE: CASE EVENT DATE: 201407
